FAERS Safety Report 14205306 (Version 1)
Quarter: 2017Q4

REPORT INFORMATION
  Report Type: Spontaneous
  Country: FR (occurrence: FR)
  Receive Date: 20171120
  Receipt Date: 20171120
  Transmission Date: 20180321
  Serious: Yes (Other)
  Sender: FDA-Public Use
  Company Number: FR-PFIZER INC-2017492036

PATIENT

DRUGS (3)
  1. SERTRALINE [Suspect]
     Active Substance: SERTRALINE HYDROCHLORIDE
     Dosage: UNK
     Route: 064
  2. OLANZAPINE. [Suspect]
     Active Substance: OLANZAPINE
     Dosage: UNK, (PLASMATIC DOSAGE OF OLANZAPINE)
  3. OLANZAPINE. [Suspect]
     Active Substance: OLANZAPINE
     Indication: PSYCHOTIC DISORDER
     Dosage: 72 DF, UNK (72 TABLETS)
     Route: 064

REACTIONS (3)
  - Nervous system disorder [Recovered/Resolved]
  - Arrhythmia [Recovered/Resolved]
  - Maternal exposure during pregnancy [Recovered/Resolved]
